FAERS Safety Report 10164030 (Version 2)
Quarter: 2014Q2

REPORT INFORMATION
  Report Type: Spontaneous
  Country: US (occurrence: US)
  Receive Date: 20140510
  Receipt Date: 20140510
  Transmission Date: 20141212
  Serious: No
  Sender: FDA-Public Use
  Company Number: US-BRISTOL-MYERS SQUIBB COMPANY-19833185

PATIENT
  Age: 47 Year
  Sex: Female
  Weight: 99.77 kg

DRUGS (2)
  1. BYETTA [Suspect]
     Indication: TYPE 2 DIABETES MELLITUS
     Dosage: PRESCRIPTION #0656940-07484
     Dates: start: 2013
  2. METFORMIN HCL [Suspect]
     Route: 048

REACTIONS (3)
  - Hyperchlorhydria [Not Recovered/Not Resolved]
  - Blood glucose decreased [Unknown]
  - Nausea [Unknown]
